FAERS Safety Report 24608844 (Version 1)
Quarter: 2024Q4

REPORT INFORMATION
  Report Type: Spontaneous
  Country: US (occurrence: US)
  Receive Date: 20241112
  Receipt Date: 20241112
  Transmission Date: 20250114
  Serious: No
  Sender: Alora Pharma
  Company Number: US-ACELLA PHARMACEUTICALS, LLC-2024ALO00196

PATIENT
  Sex: Female
  Weight: 72.121 kg

DRUGS (3)
  1. CICLOPIROX [Suspect]
     Active Substance: CICLOPIROX
     Indication: Fungal foot infection
     Dosage: UNK, 1X/DAY
     Route: 061
     Dates: start: 202403
  2. UNSPECIFIED INGREDIENT [Concomitant]
     Active Substance: UNSPECIFIED INGREDIENT
  3. UNSPECIFIED INGREDIENT [Concomitant]
     Active Substance: UNSPECIFIED INGREDIENT

REACTIONS (1)
  - Haemorrhage [Unknown]

NARRATIVE: CASE EVENT DATE: 20240101
